FAERS Safety Report 9172122 (Version 6)
Quarter: 2013Q3

REPORT INFORMATION
  Report Type: Spontaneous
  Country: US (occurrence: US)
  Receive Date: 20130319
  Receipt Date: 20130826
  Transmission Date: 20140515
  Serious: Yes (Hospitalization, Other)
  Sender: FDA-Public Use
  Company Number: US-009507513-1303USA007824

PATIENT
  Age: 31 Year
  Sex: Male

DRUGS (3)
  1. VICTRELIS [Suspect]
     Indication: HEPATITIS C
     Dosage: UNK
     Route: 065
     Dates: start: 20121216
  2. REBETOL [Suspect]
     Indication: HEPATITIS C
     Dosage: 800 MG, QD, IN DIVIDED DOSES
     Route: 048
     Dates: start: 20120927
  3. PEGASYS [Suspect]
     Indication: HEPATITIS C
     Dosage: 180 MICROGRAM, QW, DOSE FORM: PROCLICK INJECTOR
     Route: 058
     Dates: start: 20120927

REACTIONS (35)
  - Oesophageal operation [Unknown]
  - Testicular mass [Unknown]
  - Epididymitis [Unknown]
  - Recurrent cancer [Unknown]
  - Emotional distress [Unknown]
  - Crying [Unknown]
  - Hepatitis [Unknown]
  - Local swelling [Recovering/Resolving]
  - Anxiety [Unknown]
  - Influenza like illness [Not Recovered/Not Resolved]
  - Anaemia [Recovered/Resolved]
  - Emotional distress [Unknown]
  - Hypersomnia [Unknown]
  - Hyperchlorhydria [Unknown]
  - Dysphagia [Unknown]
  - White blood cell count decreased [Unknown]
  - Oedema peripheral [Unknown]
  - Dehydration [Unknown]
  - Skin atrophy [Unknown]
  - Skin fissures [Recovered/Resolved]
  - Cough [Unknown]
  - Shigella infection [Unknown]
  - Fungal infection [Unknown]
  - Flank pain [Unknown]
  - Micturition urgency [Unknown]
  - Urinary retention [Unknown]
  - Chromaturia [Unknown]
  - Dysuria [Unknown]
  - Drug dose omission [Unknown]
  - Diarrhoea [Recovered/Resolved]
  - Dry skin [Not Recovered/Not Resolved]
  - Platelet count decreased [Recovering/Resolving]
  - Fatigue [Unknown]
  - Irritability [Unknown]
  - Neutrophil count decreased [Unknown]
